FAERS Safety Report 9759502 (Version 1)
Quarter: 2013Q4

REPORT INFORMATION
  Report Type: Spontaneous
  Country: US (occurrence: US)
  Receive Date: 20131216
  Receipt Date: 20131216
  Transmission Date: 20140711
  Serious: No
  Sender: FDA-Public Use
  Company Number: US-ENDO PHARMACEUTICALS INC.-OXAT20110004

PATIENT
  Age: 71 Year
  Sex: Male

DRUGS (2)
  1. OXYCODONE/ACETAMINOPHEN TABLETS [Suspect]
     Indication: PRODUCT USED FOR UNKNOWN INDICATION
     Dosage: UNKNOWN
     Route: 048
  2. OXYCONTIN [Suspect]
     Indication: PRODUCT USED FOR UNKNOWN INDICATION
     Dosage: UNKNOWN
     Route: 048

REACTIONS (13)
  - Completed suicide [None]
  - Intentional overdose [None]
  - Toxicity to various agents [None]
  - Hepatotoxicity [Unknown]
  - Analgesic drug level increased [Unknown]
  - Lethargy [Unknown]
  - Depressed level of consciousness [Unknown]
  - Respiratory depression [Unknown]
  - Acidosis [Unknown]
  - Aspartate aminotransferase increased [Recovering/Resolving]
  - Alanine aminotransferase increased [Recovering/Resolving]
  - Liver function test abnormal [Recovering/Resolving]
  - International normalised ratio increased [Unknown]
